FAERS Safety Report 5147852-8 (Version None)
Quarter: 2006Q4

REPORT INFORMATION
  Report Type: 
  Country: None (occurrence: None)
  Receive Date: 20060918
  Receipt Date: 20050722
  Transmission Date: 20070319
  Serious: Yes (Hospitalization)
  Sender: FDA-Public Use
  Company Number: US-JNJFOC-20050705310

PATIENT
  Age: 74 Year
  Sex: Male

DRUGS (8)
  1. TOPAMAX [Suspect]
     Indication: TREMOR
     Dosage: 100 MG , 2 IN 1 DAY, ORAL
     Route: 048
  2. ASPIRIN [Concomitant]
  3. COLACE () DOCUSATE SODIUM [Concomitant]
  4. NITROTAB (GLYCERYL TRINITRATE) [Concomitant]
  5. ATIVAN [Concomitant]
  6. IMDUR [Concomitant]
  7. PROZAC [Concomitant]
  8. PRIMODONE (MIXOGEN) [Concomitant]

REACTIONS (2)
  - PANCREATITIS [None]
  - TREMOR [None]
